FAERS Safety Report 8525273-5 (Version None)
Quarter: 2012Q3

REPORT INFORMATION
  Report Type: 
  Country: None (occurrence: None)
  Receive Date: 20120720
  Receipt Date: 20120717
  Transmission Date: 20120928
  Serious: Yes (Other)
  Sender: FDA-Public Use
  Company Number: PHHY2012JP061733

PATIENT
  Sex: Male

DRUGS (5)
  1. TAMSULOSIN HCL [Concomitant]
     Indication: BENIGN PROSTATIC HYPERPLASIA
     Dosage: 0.2 MG, UNK
     Route: 048
     Dates: end: 20111230
  2. FUROSEMIDE [Concomitant]
     Indication: CARDIAC FAILURE CONGESTIVE
     Dosage: 20 MG, UNK
     Route: 048
     Dates: end: 20111230
  3. CONIEL [Concomitant]
     Indication: HYPERTENSION
     Dosage: 4 MG, UNK
     Route: 048
     Dates: end: 20111230
  4. EXELON [Suspect]
     Indication: DEMENTIA ALZHEIMER'S TYPE
     Dosage: 4.5 MG,DAILY
     Route: 062
     Dates: start: 20111209, end: 20111230
  5. VESICARE [Concomitant]
     Indication: BENIGN PROSTATIC HYPERPLASIA
     Dosage: 5 MG, UNK
     Route: 048
     Dates: end: 20111230

REACTIONS (3)
  - ELECTROCARDIOGRAM ST-T CHANGE [None]
  - CHRONIC OBSTRUCTIVE PULMONARY DISEASE [None]
  - ACUTE MYOCARDIAL INFARCTION [None]
